FAERS Safety Report 5252375-1 (Version None)
Quarter: 2007Q1

REPORT INFORMATION
  Report Type: 
  Country: None (occurrence: None)
  Receive Date: 20070301
  Receipt Date: 20060901
  Transmission Date: 20070707
  Serious: No
  Sender: FDA-Public Use
  Company Number: US-BRISTOL-MYERS SQUIBB COMPANY-13495742

PATIENT
  Age: 68 Year
  Sex: Female

DRUGS (5)
  1. TAXOL [Suspect]
     Indication: BREAST CANCER
     Route: 042
     Dates: start: 20060830, end: 20060830
  2. DECADRON [Concomitant]
     Route: 042
     Dates: start: 20060830, end: 20060830
  3. BENADRYL [Concomitant]
     Route: 042
     Dates: start: 20060830, end: 20060830
  4. FAMOTIDINE [Concomitant]
     Route: 042
     Dates: start: 20060830, end: 20060830
  5. ZOFRAN [Concomitant]
     Route: 042
     Dates: start: 20060830, end: 20060830

REACTIONS (1)
  - DRUG ADMINISTRATION ERROR [None]
